FAERS Safety Report 19722301 (Version 1)
Quarter: 2021Q3

REPORT INFORMATION
  Report Type: Spontaneous
  Country: US (occurrence: US)
  Receive Date: 20210819
  Receipt Date: 20210819
  Transmission Date: 20211014
  Serious: No
  Sender: FDA-Public Use
  Company Number: US-009507513-2107USA007757

PATIENT
  Age: 52 Year
  Sex: Female

DRUGS (2)
  1. STEGLATRO [Suspect]
     Active Substance: ERTUGLIFLOZIN PIDOLATE
     Dosage: 15 MILLIGRAM
     Route: 048
     Dates: start: 202107
  2. STEGLATRO [Suspect]
     Active Substance: ERTUGLIFLOZIN PIDOLATE
     Indication: TYPE 2 DIABETES MELLITUS
     Dosage: 5 MG, ONCE DAILY
     Route: 048
     Dates: end: 202107

REACTIONS (1)
  - Glycosylated haemoglobin increased [Unknown]

NARRATIVE: CASE EVENT DATE: 20210716
